FAERS Safety Report 5544674-0 (Version None)
Quarter: 2007Q4

REPORT INFORMATION
  Report Type: 
  Country: None (occurrence: None)
  Receive Date: 20071210
  Receipt Date: 20070104
  Transmission Date: 20080405
  Serious: No
  Sender: FDA-Public Use
  Company Number: US-AMGEN-KDL205680

PATIENT
  Sex: Female

DRUGS (1)
  1. ENBREL [Suspect]
     Indication: PSORIASIS
     Route: 058
     Dates: start: 20060511

REACTIONS (9)
  - EYE SWELLING [None]
  - INJECTION SITE REACTION [None]
  - NASOPHARYNGITIS [None]
  - NAUSEA [None]
  - PSORIASIS [None]
  - PYREXIA [None]
  - SECRETION DISCHARGE [None]
  - VOMITING [None]
  - WEIGHT DECREASED [None]
